FAERS Safety Report 25961245 (Version 2)
Quarter: 2025Q4

REPORT INFORMATION
  Report Type: Report from Study
  Country: US (occurrence: US)
  Receive Date: 20251027
  Receipt Date: 20251224
  Transmission Date: 20260118
  Serious: Yes (Other)
  Sender: ABBVIE
  Company Number: US-ABBVIE-6471840

PATIENT
  Sex: Male

DRUGS (6)
  1. SKYRIZI [Suspect]
     Active Substance: RISANKIZUMAB-RZAA
     Indication: Maternal exposure timing unspecified
  2. SKYRIZI [Suspect]
     Active Substance: RISANKIZUMAB-RZAA
  3. DIPHTHERIA AND TETANUS TOXOIDS AND ACELLULAR PERTUSSIS ADSORBED AND IN [Concomitant]
     Active Substance: DIPHTHERIA AND TETANUS TOXOIDS AND ACELLULAR PERTUSSIS ADSORBED AND INACTIVATED POLIOVIRUS VACCINE
     Indication: Diphtheria immunisation
     Dates: start: 20250709, end: 20250709
  4. HEPATITIS B VIRUS VACCINE [Concomitant]
     Active Substance: HEPATITIS B VIRUS VACCINE
     Indication: Hepatitis B immunisation
     Dates: start: 20250609, end: 20250609
  5. ROTATEQ [Concomitant]
     Active Substance: HUMAN ROTAVIRUS A TYPE G1P7(5) STRAIN WI79 LIVE ANTIGEN\HUMAN ROTAVIRUS A TYPE G2P7(5) STRAIN SC2 LI
     Indication: Rotavirus immunisation
     Dates: start: 20250609, end: 20250609
  6. VITAMIN D [Concomitant]
     Active Substance: VITAMIN D NOS
     Indication: Vitamin supplementation
     Route: 048
     Dates: start: 20250507

REACTIONS (11)
  - Tethered oral tissue [Unknown]
  - Dacryostenosis acquired [Recovered/Resolved]
  - Exposure via breast milk [Unknown]
  - Jaundice neonatal [Recovered/Resolved]
  - Foetal exposure during pregnancy [Unknown]
  - Torticollis [Not Recovered/Not Resolved]
  - Gastrooesophageal reflux disease [Not Recovered/Not Resolved]
  - Irritability [Recovered/Resolved]
  - Poor weight gain neonatal [Recovered/Resolved]
  - Flatulence [Not Recovered/Not Resolved]
  - Milia [Not Recovered/Not Resolved]

NARRATIVE: CASE EVENT DATE: 20250101
